FAERS Safety Report 25084538 (Version 1)
Quarter: 2025Q1

REPORT INFORMATION
  Report Type: Spontaneous
  Country: IN (occurrence: IN)
  Receive Date: 20250317
  Receipt Date: 20250317
  Transmission Date: 20250409
  Serious: Yes (Other)
  Sender: PFIZER
  Company Number: IN-PFIZER INC-PV202500028390

PATIENT
  Age: 37 Year
  Sex: Female

DRUGS (2)
  1. LORLATINIB [Suspect]
     Active Substance: LORLATINIB
     Dosage: 100 MG, 1X/DAY
     Route: 048
     Dates: start: 20250215
  2. LORLATINIB [Suspect]
     Active Substance: LORLATINIB
     Dosage: 100 MG, 1X/DAY
     Route: 048
     Dates: start: 20250219

REACTIONS (8)
  - Pleural effusion [Not Recovered/Not Resolved]
  - Constipation [Unknown]
  - Weight increased [Unknown]
  - Dyspnoea [Recovered/Resolved]
  - Depression [Unknown]
  - Tension [Unknown]
  - Anxiety [Unknown]
  - Mood swings [Unknown]
